FAERS Safety Report 4471993-1 (Version None)
Quarter: 2004Q4

REPORT INFORMATION
  Report Type: 
  Country: None (occurrence: None)
  Receive Date: 20041007
  Receipt Date: 20040924
  Transmission Date: 20050328
  Serious: No
  Sender: FDA-Public Use
  Company Number: 2004UW20246

PATIENT
  Age: 86 Year
  Sex: Female

DRUGS (4)
  1. SEROQUEL [Suspect]
     Dosage: 325 MG QD PO
     Route: 048
  2. LORAZEPAM [Suspect]
     Dosage: 5 MG QD PO
     Route: 048
  3. SERTRALINE HCL [Suspect]
     Dosage: 100 MG QD PO
     Route: 048
  4. SLOW-K [Concomitant]

REACTIONS (2)
  - FALL [None]
  - PATHOLOGICAL FRACTURE [None]
